FAERS Safety Report 15412199 (Version 1)
Quarter: 2018Q3

REPORT INFORMATION
  Report Type: Spontaneous
  Country: US (occurrence: US)
  Receive Date: 20180921
  Receipt Date: 20180921
  Transmission Date: 20181010
  Serious: No
  Sender: FDA-Public Use
  Company Number: US-RECKITT BENCKISER HEALTHCARE INT LIMITED-RB-99702-2017

PATIENT
  Age: 32 Year
  Sex: Female

DRUGS (2)
  1. MUCINEX MAXIMUM STRENGTH [Suspect]
     Active Substance: GUAIFENESIN
     Indication: COUGH
     Dosage: 1200 MG, SINGLE
     Route: 065
  2. MUCINEX FAST?MAX SEVERE CONGESTION AND COUGH [Suspect]
     Active Substance: DEXTROMETHORPHAN HYDROBROMIDE\GUAIFENESIN\PHENYLEPHRINE HYDROCHLORIDE
     Indication: COUGH
     Dosage: UNK, TOOK A DOSE IN THE MORNING, THEN AT NIGHT AND AGAIN IN THE MIDDLE OF NIGHT
     Route: 065
     Dates: start: 20171130

REACTIONS (2)
  - Drug ineffective [Not Recovered/Not Resolved]
  - Drug abuse [Unknown]

NARRATIVE: CASE EVENT DATE: 20171130
